FAERS Safety Report 4698894-8 (Version None)
Quarter: 2005Q2

REPORT INFORMATION
  Report Type: 
  Country: None (occurrence: None)
  Receive Date: 20050624
  Receipt Date: 20050607
  Transmission Date: 20051028
  Serious: Yes (Death)
  Sender: FDA-Public Use
  Company Number: US-BOEHRINGER INGELHEIM PHARMACEUTICALS, INC.-2005-BP-09493BP

PATIENT
  Sex: Male

DRUGS (11)
  1. SPIRIVA [Suspect]
     Dosage: DAILY
     Route: 055
  2. PANTOPRAZOLE [Suspect]
     Route: 048
  3. COVERSYL [Suspect]
     Route: 048
  4. ALLOPURINOL [Suspect]
     Route: 048
  5. FUROSEMIDE [Suspect]
     Route: 048
  6. DIGOXIN [Suspect]
     Route: 048
  7. SIMVASTATIN [Concomitant]
     Route: 048
  8. WARFARIN [Concomitant]
     Dosage: DAILY
     Route: 048
  9. BECLOMETHASONE DIPROPIONATE [Concomitant]
     Dosage: DAILY
     Route: 065
  10. VENTOLIN [Concomitant]
     Dosage: DAILY
     Route: 055
  11. PARACETAMOL [Concomitant]
     Dosage: DAILY
     Route: 048

REACTIONS (1)
  - AORTIC DISSECTION [None]
